FAERS Safety Report 9920896 (Version 1)
Quarter: 2014Q1

REPORT INFORMATION
  Report Type: Other
  Country: GB (occurrence: GB)
  Receive Date: 20140225
  Receipt Date: 20140225
  Transmission Date: 20141002
  Serious: Yes (Other)
  Sender: FDA-Public Use
  Company Number: GB-SUN PHARMACEUTICAL INDUSTRIES LTD-2014SUN00365

PATIENT
  Age: 16 Year
  Sex: Female

DRUGS (4)
  1. OLANZAPINE 5 MG TABLET [Suspect]
     Indication: AUTISM SPECTRUM DISORDER
     Dosage: 20 MG, UNK
     Route: 065
  2. OLANZAPINE 5 MG TABLET [Suspect]
     Indication: POST-TRAUMATIC STRESS DISORDER
  3. OLANZAPINE 5 MG TABLET [Suspect]
     Indication: PSYCHOTIC DISORDER
  4. OLANZAPINE 5 MG TABLET [Suspect]
     Indication: MAJOR DEPRESSION

REACTIONS (2)
  - Hallucination, auditory [Recovered/Resolved]
  - Off label use [Unknown]
